FAERS Safety Report 13547980 (Version 2)
Quarter: 2020Q3

REPORT INFORMATION
  Report Type: Report from Study
  Country: NL (occurrence: NL)
  Receive Date: 20170516
  Receipt Date: 20170720
  Transmission Date: 20201104
  Serious: Yes (Other)
  Sender: FDA-Public Use
  Company Number: NL-ROCHE-1931058

PATIENT
  Age: 59 Year
  Sex: Female
  Weight: 100 kg

DRUGS (6)
  1. IBANDRONIC ACID. [Suspect]
     Active Substance: IBANDRONIC ACID
     Indication: BREAST CANCER
     Dosage: DATE OF LAST DOSE BEFORE EVENT: 15/APR/2015
     Route: 065
     Dates: start: 201204
  2. ARIMIDEX [Concomitant]
     Active Substance: ANASTROZOLE
  3. SPONGOSTAN [Concomitant]
     Active Substance: GELATIN
  4. DIVISUN [Concomitant]
     Route: 048
     Dates: start: 20151020
  5. PANTOPRAZOLE SODIUM. [Concomitant]
     Active Substance: PANTOPRAZOLE SODIUM
     Route: 048
     Dates: start: 20160126
  6. ANASTROZOLE. [Concomitant]
     Active Substance: ANASTROZOLE
     Route: 048
     Dates: start: 201204

REACTIONS (1)
  - Jaw fracture [Not Recovered/Not Resolved]

NARRATIVE: CASE EVENT DATE: 20170106
